FAERS Safety Report 18654977 (Version 1)
Quarter: 2020Q4

REPORT INFORMATION
  Report Type: Spontaneous
  Country: FR (occurrence: FR)
  Receive Date: 20201223
  Receipt Date: 20201223
  Transmission Date: 20210114
  Serious: Yes (Other)
  Sender: FDA-Public Use
  Company Number: FR-PFIZER INC-2020501347

PATIENT
  Age: 20 Year
  Sex: Male

DRUGS (3)
  1. URBANYL [Suspect]
     Active Substance: CLOBAZAM
     Dosage: UNK
     Route: 048
  2. XANAX [Suspect]
     Active Substance: ALPRAZOLAM
     Dosage: 5 MG (10 TABLETS OF XANAX 0.5 MG)
     Route: 048
  3. SERESTA [Suspect]
     Active Substance: OXAZEPAM
     Dosage: 400 MG  (8 TABLETS OF SERESTA 50 MG)
     Route: 048

REACTIONS (3)
  - Intentional product misuse [Unknown]
  - Somnolence [Recovered/Resolved]
  - Drug abuse [Unknown]

NARRATIVE: CASE EVENT DATE: 20200616
